FAERS Safety Report 20654489 (Version 3)
Quarter: 2023Q4

REPORT INFORMATION
  Report Type: Spontaneous
  Country: GB (occurrence: GB)
  Receive Date: 20220330
  Receipt Date: 20231012
  Transmission Date: 20240109
  Serious: Yes (Other)
  Sender: FDA-Public Use
  Company Number: None

PATIENT

DRUGS (2)
  1. LORATADINE [Suspect]
     Active Substance: LORATADINE
     Indication: Hypersensitivity
     Dosage: UNK
     Route: 065
     Dates: start: 20220319, end: 20220320
  2. ATORVASTATIN [Concomitant]
     Active Substance: ATORVASTATIN
     Indication: Blood cholesterol
     Dates: start: 2004

REACTIONS (3)
  - Palpitations [Not Recovered/Not Resolved]
  - Heart rate irregular [Unknown]
  - Tinnitus [Unknown]

NARRATIVE: CASE EVENT DATE: 20220319
